FAERS Safety Report 5740387-0 (Version None)
Quarter: 2008Q2

REPORT INFORMATION
  Report Type: 
  Country: None (occurrence: None)
  Receive Date: 20080516
  Receipt Date: 20080514
  Transmission Date: 20081010
  Serious: Yes (Hospitalization)
  Sender: FDA-Public Use
  Company Number: CH-ASTRAZENECA-2008PK01009

PATIENT
  Age: 44 Year
  Sex: Male

DRUGS (4)
  1. NEXIUM [Suspect]
     Route: 048
     Dates: start: 20070616
  2. ANTABUSE [Suspect]
     Route: 048
     Dates: start: 20070626, end: 20070703
  3. ALDACTONE [Suspect]
     Route: 048
     Dates: start: 20070616
  4. TORASIS [Suspect]
     Route: 048
     Dates: start: 20070616

REACTIONS (2)
  - DELUSION [None]
  - HALLUCINATION [None]
